FAERS Safety Report 21019301 (Version 1)
Quarter: 2022Q2

REPORT INFORMATION
  Report Type: Spontaneous
  Country: None (occurrence: US)
  Receive Date: 20220628
  Receipt Date: 20220628
  Transmission Date: 20220720
  Serious: No
  Sender: FDA-Public Use
  Company Number: US-Ricola USA Inc.-2130367

PATIENT
  Age: 59 Year
  Sex: Female

DRUGS (1)
  1. THE ORIGINAL NATURAL HERB COUGH DROPS [Suspect]
     Active Substance: MENTHOL
     Indication: Oropharyngeal pain
     Route: 048
     Dates: start: 20220609

REACTIONS (1)
  - Pharyngeal swelling [Recovered/Resolved]
